FAERS Safety Report 5904414-X (Version None)
Quarter: 2008Q3

REPORT INFORMATION
  Report Type: 
  Country: None (occurrence: None)
  Receive Date: 20080909
  Receipt Date: 20071220
  Transmission Date: 20090109
  Serious: Yes (Hospitalization)
  Sender: FDA-Public Use
  Company Number: 163-20785-07110999

PATIENT
  Age: 62 Year
  Sex: Female
  Weight: 69.8539 kg

DRUGS (6)
  1. THALOMID [Suspect]
     Indication: MULTIPLE MYELOMA
     Dosage: 200 MG, DAILY, ORAL
     Route: 048
     Dates: start: 20070313, end: 20071112
  2. DEXAMETHASONE TAB [Concomitant]
  3. COUMADIN [Concomitant]
  4. CALCITONIN (CALCITONIN) [Concomitant]
  5. NEXIUM [Concomitant]
  6. CEFEPIME [Concomitant]

REACTIONS (3)
  - DISEASE PROGRESSION [None]
  - HYPERCALCAEMIA [None]
  - SOMNOLENCE [None]
